FAERS Safety Report 7343749-3 (Version None)
Quarter: 2011Q1

REPORT INFORMATION
  Report Type: 
  Country: None (occurrence: None)
  Receive Date: 20110310
  Receipt Date: 20110105
  Transmission Date: 20110831
  Serious: No
  Sender: FDA-Public Use
  Company Number: A0903248A

PATIENT
  Age: 61 Year
  Sex: Female

DRUGS (1)
  1. NICOTINE POLACRILEX [Suspect]
     Dates: start: 20111230

REACTIONS (1)
  - NICOTINE DEPENDENCE [None]
